FAERS Safety Report 5146752-7 (Version None)
Quarter: 2006Q4

REPORT INFORMATION
  Report Type: 
  Country: None (occurrence: None)
  Receive Date: 20061102
  Receipt Date: 20061017
  Transmission Date: 20070319
  Serious: Yes (Hospitalization)
  Sender: FDA-Public Use
  Company Number: PAR_0878_2006

PATIENT
  Age: 42 Year
  Sex: Female

DRUGS (4)
  1. QUESTRAN [Suspect]
     Indication: CHELATION THERAPY
     Dosage: DF
     Dates: start: 20060101, end: 20060208
  2. QUESTRAN [Suspect]
     Indication: CHELATION THERAPY
     Dosage: DF
     Dates: start: 20060301, end: 20060620
  3. QUESTRAN [Suspect]
     Indication: CHELATION THERAPY
     Dosage: DF
     Dates: start: 20060601, end: 20060731
  4. ARAVA [Suspect]
     Indication: RHEUMATOID ARTHRITIS
     Dosage: DF
     Dates: end: 20060119

REACTIONS (6)
  - CHOLECYSTITIS [None]
  - CHOLELITHIASIS [None]
  - DRUG CLEARANCE DECREASED [None]
  - DYSGEUSIA [None]
  - INCORRECT DOSE ADMINISTERED [None]
  - TREATMENT NONCOMPLIANCE [None]
